FAERS Safety Report 5076377-3 (Version None)
Quarter: 2006Q3

REPORT INFORMATION
  Report Type: 
  Country: None (occurrence: None)
  Receive Date: 20060807
  Receipt Date: 20060801
  Transmission Date: 20061208
  Serious: Yes (Hospitalization)
  Sender: FDA-Public Use
  Company Number: FRWYE462201AUG06

PATIENT
  Age: 73 Year
  Sex: Male

DRUGS (9)
  1. EFFEXOR [Suspect]
     Indication: DEPRESSION
     Dosage: 100 MG TOTAL DAILY ; 50 MG TOTAL DAILY; 100 MG TOTAL DAILY ; 50 MG TOTAL DAILY
     Route: 048
     Dates: start: 20050101, end: 20050101
  2. EFFEXOR [Suspect]
     Indication: DEPRESSION
     Dosage: 100 MG TOTAL DAILY ; 50 MG TOTAL DAILY; 100 MG TOTAL DAILY ; 50 MG TOTAL DAILY
     Route: 048
     Dates: start: 20050701, end: 20050101
  3. EFFEXOR [Suspect]
     Indication: DEPRESSION
     Dosage: 100 MG TOTAL DAILY ; 50 MG TOTAL DAILY; 100 MG TOTAL DAILY ; 50 MG TOTAL DAILY
     Route: 048
     Dates: start: 20050101, end: 20060701
  4. EFFEXOR [Suspect]
     Indication: DEPRESSION
     Dosage: 100 MG TOTAL DAILY ; 50 MG TOTAL DAILY; 100 MG TOTAL DAILY ; 50 MG TOTAL DAILY
     Route: 048
     Dates: start: 20050701
  5. PLAVIX [Concomitant]
  6. CALCIUM              (CALCIUM) [Concomitant]
  7. POTASSIUM           (POTASSIUM) [Concomitant]
  8. MAGNESIUM         (MAGNESIUM) [Concomitant]
  9. CODEINE (CODEINE) [Concomitant]

REACTIONS (7)
  - ANOREXIA [None]
  - DYSPEPSIA [None]
  - HICCUPS [None]
  - MALNUTRITION [None]
  - METABOLIC DISORDER [None]
  - NAUSEA [None]
  - OESOPHAGEAL DISORDER [None]
